FAERS Safety Report 12001426 (Version 5)
Quarter: 2016Q2

REPORT INFORMATION
  Report Type: Spontaneous
  Country: TR (occurrence: TR)
  Receive Date: 20160204
  Receipt Date: 20160401
  Transmission Date: 20160815
  Serious: Yes (Hospitalization, Other)
  Sender: FDA-Public Use
  Company Number: TR-PFIZER INC-2016054153

PATIENT
  Age: 46 Year
  Sex: Female
  Weight: 87 kg

DRUGS (4)
  1. RANTUDIL [Concomitant]
     Active Substance: ACEMETACIN
     Indication: PAIN
     Dosage: 90 MG, AS NEEDED
     Route: 048
  2. ARVELES [Concomitant]
     Active Substance: DEXKETOPROFEN
     Indication: PAIN
     Dosage: 25 MG, AS NEEDED
     Route: 048
  3. LYRICA [Suspect]
     Active Substance: PREGABALIN
     Indication: INTERVERTEBRAL DISC PROTRUSION
  4. LYRICA [Suspect]
     Active Substance: PREGABALIN
     Indication: NEURALGIA
     Dosage: 25 MG, DAILY
     Route: 048
     Dates: start: 20151124, end: 20160120

REACTIONS (10)
  - Vision blurred [Not Recovered/Not Resolved]
  - Intraocular pressure fluctuation [Not Recovered/Not Resolved]
  - Product substitution issue [Recovered/Resolved]
  - Intraocular pressure increased [Not Recovered/Not Resolved]
  - Glaucoma [Unknown]
  - Eye pain [Unknown]
  - Product substitution [Recovered/Resolved]
  - Blindness [Not Recovered/Not Resolved]
  - Retinal vascular disorder [Unknown]
  - Hypertension [Recovered/Resolved]

NARRATIVE: CASE EVENT DATE: 20151216
